FAERS Safety Report 11453263 (Version 1)
Quarter: 2015Q3

REPORT INFORMATION
  Report Type: Spontaneous
  Country: US (occurrence: US)
  Receive Date: 20150903
  Receipt Date: 20150903
  Transmission Date: 20151125
  Serious: No
  Sender: FDA-Public Use
  Company Number: US-PFIZER INC-2015283972

PATIENT
  Age: 46 Year
  Sex: Female
  Weight: 86.17 kg

DRUGS (5)
  1. LYRICA [Suspect]
     Active Substance: PREGABALIN
     Indication: FIBROMYALGIA
     Dosage: 50 MG, 3X/DAY
     Dates: start: 201508
  2. TRAZODONE [Concomitant]
     Active Substance: TRAZODONE HYDROCHLORIDE
     Indication: INSOMNIA
     Dosage: 50 MG, 1X/DAY (AT NIGHT ONLY)
  3. TRAZODONE [Concomitant]
     Active Substance: TRAZODONE HYDROCHLORIDE
     Indication: FIBROMYALGIA
  4. SKELAXIN [Concomitant]
     Active Substance: METAXALONE
     Indication: MYALGIA
     Dosage: 800 MG, 3X/DAY (COULD TAKE IT UP TO 4 TIMES A DAY BUT SHE USED TO TAKE IT 3 TIMES A DAY)
  5. SKELAXIN [Concomitant]
     Active Substance: METAXALONE
     Indication: FIBROMYALGIA

REACTIONS (2)
  - Drug effect decreased [Unknown]
  - Pain [Unknown]

NARRATIVE: CASE EVENT DATE: 201508
